FAERS Safety Report 7422904-8 (Version None)
Quarter: 2011Q2

REPORT INFORMATION
  Report Type: 
  Country: None (occurrence: None)
  Receive Date: 20110414
  Receipt Date: 20110414
  Transmission Date: 20111010
  Serious: Yes (Other)
  Sender: FDA-Public Use
  Company Number: None

PATIENT
  Sex: Male
  Weight: 2.6762 kg

DRUGS (1)
  1. TERBUTALINE [Suspect]
     Indication: PREMATURE LABOUR
     Dosage: 5MG BID PO; 0.25 STAT SQ
     Route: 048
     Dates: start: 20010814, end: 20011112

REACTIONS (15)
  - NIGHT SWEATS [None]
  - PSYCHOMOTOR HYPERACTIVITY [None]
  - HEADACHE [None]
  - MATERNAL DRUGS AFFECTING FOETUS [None]
  - PALPITATIONS [None]
  - INSOMNIA [None]
  - ANXIETY [None]
  - DRUG INEFFECTIVE [None]
  - TREMOR [None]
  - NEONATAL RESPIRATORY ARREST [None]
  - PREMATURE BABY [None]
  - BODY TEMPERATURE INCREASED [None]
  - EMOTIONAL DISORDER [None]
  - HEART RATE INCREASED [None]
  - RESTLESSNESS [None]
